FAERS Safety Report 9863640 (Version 1)
Quarter: 2014Q1

REPORT INFORMATION
  Report Type: Spontaneous
  Country: US (occurrence: US)
  Receive Date: 20140203
  Receipt Date: 20140203
  Transmission Date: 20141002
  Serious: No
  Sender: FDA-Public Use
  Company Number: US-GILEAD-2013-0080911

PATIENT
  Sex: Female

DRUGS (2)
  1. CAYSTON [Suspect]
     Indication: PRODUCT USED FOR UNKNOWN INDICATION
     Dosage: 75 MG, UNK
     Route: 055
     Dates: start: 20130605
  2. CAYSTON [Suspect]
     Dosage: 75 MG, UNK
     Route: 055

REACTIONS (3)
  - Laceration [Unknown]
  - Product container issue [Unknown]
  - Product container issue [Unknown]
